FAERS Safety Report 5563042-9 (Version None)
Quarter: 2007Q4

REPORT INFORMATION
  Report Type: 
  Country: None (occurrence: None)
  Receive Date: 20071217
  Receipt Date: 20071205
  Transmission Date: 20080405
  Serious: Yes (Death, Hospitalization)
  Sender: FDA-Public Use
  Company Number: A0631971A

PATIENT
  Age: 10 Year
  Sex: Male
  Weight: 56.8 kg

DRUGS (3)
  1. ADVAIR DISKUS 100/50 [Suspect]
     Indication: ASTHMA
     Dosage: 1PUFF TWICE PER DAY
     Route: 055
     Dates: start: 20040504
  2. FLOVENT [Concomitant]
     Indication: ASTHMA
     Dosage: 1PUFF TWICE PER DAY
     Route: 055
     Dates: end: 20040501
  3. ALBUTEROL [Concomitant]

REACTIONS (15)
  - ASTHMA [None]
  - BRONCHIAL SECRETION RETENTION [None]
  - CARDIAC ARREST [None]
  - CARDIO-RESPIRATORY ARREST [None]
  - CYANOSIS [None]
  - DYSPNOEA [None]
  - INCREASED APPETITE [None]
  - INJURY [None]
  - LUNG HYPERINFLATION [None]
  - PAIN [None]
  - PULMONARY EOSINOPHILIA [None]
  - RESPIRATORY DISTRESS [None]
  - SYNCOPE [None]
  - VOMITING [None]
  - WHEEZING [None]
